FAERS Safety Report 4829361-6 (Version None)
Quarter: 2005Q4

REPORT INFORMATION
  Report Type: 
  Country: None (occurrence: None)
  Receive Date: 20051116
  Receipt Date: 20051104
  Transmission Date: 20060501
  Serious: Yes (Other)
  Sender: FDA-Public Use
  Company Number: PHBS2005DE16453

PATIENT
  Sex: Female

DRUGS (3)
  1. HYDROCHLOROTHIAZIDE [Suspect]
     Route: 064
  2. EBRANTIL [Suspect]
     Route: 064
  3. CANDESARTAN [Suspect]
     Route: 064

REACTIONS (17)
  - ACIDOSIS [None]
  - CAESAREAN SECTION [None]
  - DRUG EXPOSURE DURING PREGNANCY [None]
  - ELECTROENCEPHALOGRAM ABNORMAL [None]
  - FOETAL DAMAGE [None]
  - HAEMOGLOBIN INCREASED [None]
  - MUSCLE CONTRACTIONS INVOLUNTARY [None]
  - NEONATAL ASPHYXIA [None]
  - NEONATAL INFECTION [None]
  - PATENT DUCTUS ARTERIOSUS [None]
  - PLATELET COUNT INCREASED [None]
  - PREMATURE BABY [None]
  - PREMATURE RUPTURE OF MEMBRANES [None]
  - RENAL IMPAIRMENT [None]
  - RENAL TUBULAR DISORDER [None]
  - RENIN INCREASED [None]
  - URINE ANALYSIS ABNORMAL [None]
